FAERS Safety Report 7270261-2 (Version None)
Quarter: 2011Q1

REPORT INFORMATION
  Report Type: 
  Country: None (occurrence: None)
  Receive Date: 20110125
  Receipt Date: 20110125
  Transmission Date: 20110831
  Serious: Yes (Other)
  Sender: FDA-Public Use
  Company Number: None

PATIENT
  Sex: Female
  Weight: 88.4514 kg

DRUGS (2)
  1. DEPO-PROVERA [Suspect]
     Indication: CONTRACEPTION
     Dosage: 150 MG EVERY 12 WEEKS IM
     Route: 030
     Dates: start: 20100212, end: 20100505
  2. PROZAC [Suspect]

REACTIONS (4)
  - WEIGHT INCREASED [None]
  - HYPOTHALAMO-PITUITARY DISORDER [None]
  - SKIN STRIAE [None]
  - HYPOGONADISM [None]
